FAERS Safety Report 18118009 (Version 1)
Quarter: 2020Q3

REPORT INFORMATION
  Report Type: Spontaneous
  Country: US (occurrence: US)
  Receive Date: 20200806
  Receipt Date: 20200806
  Transmission Date: 20201103
  Serious: Yes (Hospitalization, Other)
  Sender: FDA-Public Use
  Company Number: US-ELI_LILLY_AND_COMPANY-US202007012206

PATIENT
  Sex: Female

DRUGS (1)
  1. HUMULIN N [Suspect]
     Active Substance: INSULIN HUMAN
     Indication: PRODUCT USED FOR UNKNOWN INDICATION
     Dosage: 30 U, EACH MORNING
     Route: 058
     Dates: start: 2011

REACTIONS (7)
  - Fall [Unknown]
  - Lower limb fracture [Unknown]
  - Arthritis [Unknown]
  - Skin ulcer [Unknown]
  - Gait disturbance [Unknown]
  - Joint injury [Unknown]
  - Fall [Not Recovered/Not Resolved]

NARRATIVE: CASE EVENT DATE: 2018
